FAERS Safety Report 9364101 (Version 2)
Quarter: 2013Q4

REPORT INFORMATION
  Report Type: Spontaneous
  Country: JP (occurrence: JP)
  Receive Date: 20130624
  Receipt Date: 20131224
  Transmission Date: 20140711
  Serious: Yes (Other)
  Sender: FDA-Public Use
  Company Number: JP-009507513-1306JPN010795

PATIENT
  Age: 63 Year
  Sex: Male

DRUGS (3)
  1. JANUVIA TABLETS 50MG [Suspect]
     Indication: TYPE 2 DIABETES MELLITUS
     Dosage: 50 MG, QD
     Route: 048
     Dates: start: 20130528, end: 20130603
  2. BEZATOL SR [Concomitant]
     Dosage: 100 MG, DIVIDED DOSE FREQUENCY UNKNOWN
     Route: 048
  3. ZYLORIC [Concomitant]
     Dosage: 200 MG, DIVIDED DOSE FREQUENCY UNKNOWN
     Route: 048

REACTIONS (3)
  - Eyelid ptosis [Unknown]
  - Swelling face [Unknown]
  - Rash [Recovered/Resolved]
